FAERS Safety Report 10254038 (Version 3)
Quarter: 2014Q3

REPORT INFORMATION
  Report Type: Spontaneous
  Country: AT (occurrence: AT)
  Receive Date: 20140623
  Receipt Date: 20140721
  Transmission Date: 20150326
  Serious: Yes (Hospitalization)
  Sender: FDA-Public Use
  Company Number: PHHY2014AT076479

PATIENT
  Age: 62 Year
  Sex: Female
  Weight: 85 kg

DRUGS (5)
  1. EXJADE [Suspect]
     Active Substance: DEFERASIROX
     Dosage: UNK
  2. EXJADE [Suspect]
     Active Substance: DEFERASIROX
     Dosage: 500 MG (2-0-0)
     Dates: start: 201201, end: 201208
  3. EXJADE [Suspect]
     Active Substance: DEFERASIROX
     Dosage: 500 MG, THREE TABLETS AT A DOSE OF 500 MG
  4. EXJADE [Suspect]
     Active Substance: DEFERASIROX
     Dosage: UNK
     Dates: start: 201310
  5. AZACITIDINE. [Suspect]
     Active Substance: AZACITIDINE
     Indication: MYELODYSPLASTIC SYNDROME
     Dosage: 75 MG PER SQ.M BODY SURFACE AREA

REACTIONS (3)
  - Renal failure acute [Recovered/Resolved]
  - Dehydration [Recovered/Resolved]
  - Weight decreased [Recovered/Resolved]

NARRATIVE: CASE EVENT DATE: 201308
